FAERS Safety Report 8435606-6 (Version None)
Quarter: 2012Q2

REPORT INFORMATION
  Report Type: 
  Country: None (occurrence: None)
  Receive Date: 20120614
  Receipt Date: 20120605
  Transmission Date: 20120825
  Serious: Yes (Other)
  Sender: FDA-Public Use
  Company Number: US-JNJFOC-20120605729

PATIENT

DRUGS (4)
  1. MITOMYCIN [Suspect]
     Indication: PSEUDOMYXOMA PERITONEI
     Route: 065
  2. DOXORUBICIN HYDROCHLORIDE [Suspect]
     Indication: PSEUDOMYXOMA PERITONEI
     Route: 065
  3. DOXORUBICIN HYDROCHLORIDE [Suspect]
     Indication: PERITONEAL MESOTHELIOMA MALIGNANT
     Route: 065
  4. MITOMYCIN [Suspect]
     Indication: PERITONEAL MESOTHELIOMA MALIGNANT
     Route: 065

REACTIONS (3)
  - OFF LABEL USE [None]
  - ADVERSE DRUG REACTION [None]
  - INCORRECT ROUTE OF DRUG ADMINISTRATION [None]
